FAERS Safety Report 22524380 (Version 1)
Quarter: 2023Q2

REPORT INFORMATION
  Report Type: Spontaneous
  Country: US (occurrence: US)
  Receive Date: 20230606
  Receipt Date: 20230606
  Transmission Date: 20230721
  Serious: Yes (Life-Threatening, Hospitalization)
  Sender: FDA-Public Use
  Company Number: US-drreddys-LIT/USA/23/0166107

PATIENT
  Age: 61 Year
  Sex: Female

DRUGS (7)
  1. DEXAMETHASONE [Suspect]
     Active Substance: DEXAMETHASONE
     Indication: COVID-19
     Route: 042
  2. DOBUTAMINE HYDROCHLORIDE [Suspect]
     Active Substance: DOBUTAMINE HYDROCHLORIDE
     Indication: Sinus bradycardia
     Dosage: 2.5 MICROG/KG/MIN
  3. DOBUTAMINE HYDROCHLORIDE [Suspect]
     Active Substance: DOBUTAMINE HYDROCHLORIDE
     Indication: Blood pressure decreased
     Dosage: INCREASED UP TO 5 MICROG/KG/MIN
  4. DOBUTAMINE HYDROCHLORIDE [Suspect]
     Active Substance: DOBUTAMINE HYDROCHLORIDE
     Dosage: DOSE WAS DECREASED
  5. CLOPIDOGREL [Concomitant]
     Active Substance: CLOPIDOGREL BISULFATE
     Indication: Product used for unknown indication
  6. APIXABAN [Concomitant]
     Active Substance: APIXABAN
     Indication: Product used for unknown indication
  7. ATROPINE [Concomitant]
     Active Substance: ATROPINE
     Indication: Sinus bradycardia
     Dosage: TWICE

REACTIONS (4)
  - Sinus bradycardia [Recovered/Resolved]
  - Palpitations [Recovering/Resolving]
  - Drug intolerance [Unknown]
  - Product use in unapproved indication [Unknown]
